FAERS Safety Report 20341357 (Version 1)
Quarter: 2022Q1

REPORT INFORMATION
  Report Type: Spontaneous
  Country: US (occurrence: US)
  Receive Date: 20220117
  Receipt Date: 20220117
  Transmission Date: 20220423
  Serious: Yes (Other)
  Sender: FDA-Public Use
  Company Number: US-BAUSCH-BL-2022-000828

PATIENT
  Age: 50 Year
  Sex: Female

DRUGS (13)
  1. BESIVANCE [Suspect]
     Active Substance: BESIFLOXACIN
     Indication: Product used for unknown indication
     Route: 065
  2. LOTEMAX [Suspect]
     Active Substance: LOTEPREDNOL ETABONATE
     Indication: Product used for unknown indication
     Route: 065
  3. PROLENSA [Suspect]
     Active Substance: BROMFENAC SODIUM
     Indication: Inflammation
     Route: 061
  4. PROLENSA [Suspect]
     Active Substance: BROMFENAC SODIUM
     Indication: Corneal opacity
     Dosage: DROPS THREE TIMES DAILY
     Route: 061
  5. BALANCED SALT SOLUTION [Suspect]
     Active Substance: CALCIUM CHLORIDE\MAGNESIUM CHLORIDE\POTASSIUM CHLORIDE\SODIUM ACETATE\SODIUM CHLORIDE\SODIUM CITRATE
     Indication: Eye irrigation
     Dosage: ONE BOTTLE OF CHILLED BSS
     Route: 065
  6. MITOMYCIN C [Suspect]
     Active Substance: MITOMYCIN
     Indication: Product used for unknown indication
     Dosage: INTRAOPERATIVE
     Route: 065
  7. VIGAMOX [Suspect]
     Active Substance: MOXIFLOXACIN HYDROCHLORIDE
     Indication: Product used for unknown indication
     Route: 065
  8. PRED FORTE [Suspect]
     Active Substance: PREDNISOLONE ACETATE
     Indication: Corneal opacity
     Route: 065
  9. PRED FORTE [Suspect]
     Active Substance: PREDNISOLONE ACETATE
     Indication: Inflammation
     Dosage: PREDNISOLONE DROPS WERE INCREASED TO EIGHT TIMES PER DAY OU (BOTH EYES).
     Route: 065
  10. PRED FORTE [Suspect]
     Active Substance: PREDNISOLONE ACETATE
     Route: 065
  11. XIIDRA [Suspect]
     Active Substance: LIFITEGRAST
     Indication: Product used for unknown indication
     Route: 065
  12. ZADITOR [Suspect]
     Active Substance: KETOTIFEN FUMARATE
     Indication: Pruritus
     Dosage: TWICE DAILY OU (BOTH EYES)
     Route: 065
  13. SIMBRINZA [Suspect]
     Active Substance: BRIMONIDINE TARTRATE\BRINZOLAMIDE
     Indication: Glaucoma
     Route: 065

REACTIONS (2)
  - Toxicity to various agents [Recovering/Resolving]
  - Multiple drug therapy [Recovering/Resolving]
